FAERS Safety Report 12072141 (Version 1)
Quarter: 2016Q1

REPORT INFORMATION
  Report Type: Spontaneous
  Country: US (occurrence: None)
  Receive Date: 20160211
  Receipt Date: 20160211
  Transmission Date: 20160526
  Serious: No
  Sender: FDA-Public Use
  Company Number: None

PATIENT
  Age: 52 Year

DRUGS (1)
  1. LISINOPRIL. [Suspect]
     Active Substance: LISINOPRIL

REACTIONS (7)
  - Blood pressure increased [None]
  - Feeling abnormal [None]
  - Renal failure [None]
  - Toxicity to various agents [None]
  - Dehydration [None]
  - Infrequent bowel movements [None]
  - Fall [None]
